FAERS Safety Report 4856632-X (Version None)
Quarter: 2005Q4

REPORT INFORMATION
  Report Type: 
  Country: None (occurrence: None)
  Receive Date: 20051219
  Receipt Date: 20050110
  Transmission Date: 20060501
  Serious: No
  Sender: FDA-Public Use
  Company Number: US-GLAXOSMITHKLINE-A0540007A

PATIENT
  Age: 54 Year
  Sex: Male

DRUGS (2)
  1. NICODERM CQ [Suspect]
     Dates: start: 20041125
  2. EQUATE NTS 14MG [Suspect]

REACTIONS (3)
  - APPLICATION SITE ERYTHEMA [None]
  - PAIN IN EXTREMITY [None]
  - PALPITATIONS [None]
